FAERS Safety Report 12314151 (Version 2)
Quarter: 2016Q3

REPORT INFORMATION
  Report Type: Spontaneous
  Country: GB (occurrence: GB)
  Receive Date: 20160428
  Receipt Date: 20160808
  Transmission Date: 20161109
  Serious: Yes (Disabling)
  Sender: FDA-Public Use
  Company Number: GB-ALLERGAN-1654925US

PATIENT
  Age: 86 Year
  Sex: Female

DRUGS (6)
  1. CHOLECALCIFEROL [Concomitant]
     Active Substance: CHOLECALCIFEROL
     Indication: PRODUCT USED FOR UNKNOWN INDICATION
  2. ACULAR [Suspect]
     Active Substance: KETOROLAC TROMETHAMINE
     Indication: POSTOPERATIVE CARE
     Dosage: UNK
     Route: 047
  3. ASPIRIN. [Concomitant]
     Active Substance: ASPIRIN
     Indication: PRODUCT USED FOR UNKNOWN INDICATION
  4. AMITRIPTYLINE [Concomitant]
     Active Substance: AMITRIPTYLINE
     Indication: PRODUCT USED FOR UNKNOWN INDICATION
  5. MAXITROL [Interacting]
     Active Substance: DEXAMETHASONE\NEOMYCIN SULFATE\POLYMYXIN B SULFATE
     Indication: POSTOPERATIVE CARE
     Dosage: UNK
     Route: 065
  6. RANITIDINE. [Concomitant]
     Active Substance: RANITIDINE
     Indication: PRODUCT USED FOR UNKNOWN INDICATION

REACTIONS (2)
  - Retinal pigment epitheliopathy [Not Recovered/Not Resolved]
  - Drug interaction [Unknown]
